FAERS Safety Report 7811332-9 (Version None)
Quarter: 2011Q4

REPORT INFORMATION
  Report Type: 
  Country: None (occurrence: None)
  Receive Date: 20111013
  Receipt Date: 20111004
  Transmission Date: 20120403
  Serious: Yes (Hospitalization, Other)
  Sender: FDA-Public Use
  Company Number: GB-PFIZER INC-2011238565

PATIENT
  Age: 78 Year
  Sex: Female

DRUGS (4)
  1. AMITRIPTYLINE [Concomitant]
     Dosage: 100 MG, 1X/DAY
  2. LANSOPRAZOLE [Concomitant]
     Dosage: 30 MG, 1X/DAY
  3. SUNITINIB MALATE [Suspect]
     Indication: METASTATIC RENAL CELL CARCINOMA
     Dosage: 37.5 MG, 1X/DAY (FOUR WEEKS ON , 2 WEEKS OFF)
  4. PROPRANOLOL [Concomitant]
     Dosage: 40 MG, 1X/DAY

REACTIONS (10)
  - ASTHENIA [None]
  - DECREASED APPETITE [None]
  - STOMATITIS [None]
  - OESOPHAGITIS [None]
  - MELAENA [None]
  - VOMITING [None]
  - DYSPEPSIA [None]
  - HYPERTHYROIDISM [None]
  - ACUTE PSYCHOSIS [None]
  - GASTRITIS EROSIVE [None]
